FAERS Safety Report 7572757-2 (Version None)
Quarter: 2011Q2

REPORT INFORMATION
  Report Type: 
  Country: None (occurrence: None)
  Receive Date: 20110620
  Receipt Date: 20110608
  Transmission Date: 20111010
  Serious: Yes (Other)
  Sender: FDA-Public Use
  Company Number: LEO-2011-00497

PATIENT
  Age: 35 Year
  Sex: Female

DRUGS (6)
  1. SEVELAMER HYDROCHLORIDE (SEVELAMER HYDROCHLORIDE) [Concomitant]
  2. IRON SUCROSE (SACCHARATED IRON OXIDE) [Concomitant]
  3. INNOHEP [Suspect]
     Indication: PRODUCT USED FOR UNKNOWN INDICATION
     Dosage: 3500 IU, SUBCUTANEOUS
     Route: 058
  4. LEVOCARNITINE (LEVOCARNITINE) [Concomitant]
  5. FOLIC ACID [Concomitant]
  6. DARBOPOETIN (DARBEPOETIN ALFA) [Concomitant]

REACTIONS (11)
  - CERVICAL INCOMPETENCE [None]
  - ANXIETY [None]
  - DRUG EXPOSURE DURING PREGNANCY [None]
  - PREGNANCY [None]
  - ABDOMINAL PAIN LOWER [None]
  - PREMATURE RUPTURE OF MEMBRANES [None]
  - CAESAREAN SECTION [None]
  - BLOOD PRESSURE DIASTOLIC DECREASED [None]
  - SUPPRESSED LACTATION [None]
  - UTERINE HAEMORRHAGE [None]
  - PREMATURE DELIVERY [None]
